FAERS Safety Report 12652597 (Version 3)
Quarter: 2016Q4

REPORT INFORMATION
  Report Type: Spontaneous
  Country: US (occurrence: US)
  Receive Date: 20160815
  Receipt Date: 20161018
  Transmission Date: 20170207
  Serious: Yes (Other)
  Sender: FDA-Public Use
  Company Number: US-PFIZER INC-2016385835

PATIENT
  Age: 67 Year
  Sex: Male
  Weight: 84.81 kg

DRUGS (2)
  1. IBRANCE [Suspect]
     Active Substance: PALBOCICLIB
     Indication: ANGIOSARCOMA
     Dosage: 125 MG, CYCLIC (21 DAYS STRAIGHT WITH 7 DAYS BREAK)
     Route: 048
     Dates: start: 20160607
  2. IBRANCE [Suspect]
     Active Substance: PALBOCICLIB
     Dosage: 125 MG, UNK

REACTIONS (4)
  - Product use issue [Unknown]
  - Cough [Not Recovered/Not Resolved]
  - Neoplasm progression [Unknown]
  - Pneumothorax [Unknown]

NARRATIVE: CASE EVENT DATE: 201606
